FAERS Safety Report 26140755 (Version 1)
Quarter: 2025Q4

REPORT INFORMATION
  Report Type: Spontaneous
  Country: EU (occurrence: EU)
  Receive Date: 20251210
  Receipt Date: 20251210
  Transmission Date: 20260119
  Serious: Yes (Other)
  Sender: JOHNSON AND JOHNSON
  Company Number: EU-JNJFOC-20251200035

PATIENT
  Age: 74 Year
  Sex: Male

DRUGS (3)
  1. TALQUETAMAB [Suspect]
     Active Substance: TALQUETAMAB
     Indication: Plasma cell myeloma
  2. DARATUMUMAB [Suspect]
     Active Substance: DARATUMUMAB
     Indication: Plasma cell myeloma
  3. TOCILIZUMAB [Concomitant]
     Active Substance: TOCILIZUMAB
     Indication: Prophylaxis

REACTIONS (5)
  - Immune effector cell-associated neurotoxicity syndrome [Unknown]
  - Weight decreased [Unknown]
  - Ageusia [Unknown]
  - COVID-19 [Unknown]
  - Intentional product use issue [Unknown]
